FAERS Safety Report 7316002-1 (Version None)
Quarter: 2011Q1

REPORT INFORMATION
  Report Type: 
  Country: None (occurrence: None)
  Receive Date: 20110225
  Receipt Date: 20110214
  Transmission Date: 20110831
  Serious: Yes (Other)
  Sender: FDA-Public Use
  Company Number: PHHY2011JP13730

PATIENT

DRUGS (2)
  1. DIOVAN [Suspect]
     Route: 048
  2. AMLODIPINE [Concomitant]
     Route: 048

REACTIONS (1)
  - CONVULSION [None]
